FAERS Safety Report 9379700 (Version 1)
Quarter: 2013Q3

REPORT INFORMATION
  Report Type: Spontaneous
  Country: GB (occurrence: GB)
  Receive Date: 20130702
  Receipt Date: 20130702
  Transmission Date: 20140515
  Serious: Yes (Other)
  Sender: FDA-Public Use
  Company Number: GB-ELI_LILLY_AND_COMPANY-GB201306006750

PATIENT
  Age: 47 Year
  Sex: Male
  Weight: 80 kg

DRUGS (2)
  1. PROZAC [Suspect]
     Dosage: 1 DF, UNKNOWN
  2. NIGHT NURSE [Interacting]
     Indication: NASOPHARYNGITIS
     Dosage: 1 DF, UNKNOWN

REACTIONS (3)
  - Muscle twitching [Recovered/Resolved]
  - Nasopharyngitis [Unknown]
  - Drug interaction [Unknown]
